FAERS Safety Report 25902296 (Version 2)
Quarter: 2025Q4

REPORT INFORMATION
  Report Type: Spontaneous
  Country: AU (occurrence: AU)
  Receive Date: 20251009
  Receipt Date: 20251106
  Transmission Date: 20260117
  Serious: Yes (Other)
  Sender: TAKEDA
  Company Number: AU-TAKEDA-2025TUS085190

PATIENT

DRUGS (2)
  1. VYVANSE [Suspect]
     Active Substance: LISDEXAMFETAMINE DIMESYLATE
     Indication: Attention deficit hyperactivity disorder
     Dosage: UNK
  2. RITALIN [Suspect]
     Active Substance: METHYLPHENIDATE HYDROCHLORIDE
     Indication: Attention deficit hyperactivity disorder
     Dosage: UNK

REACTIONS (8)
  - Facial pain [Unknown]
  - Feeling hot [Unknown]
  - Intentional product misuse [Unknown]
  - Pain in extremity [Unknown]
  - Product availability issue [Unknown]
  - Product use issue [Unknown]
  - Suicidal ideation [Unknown]
  - Violence-related symptom [Unknown]
